FAERS Safety Report 5079630-2 (Version None)
Quarter: 2006Q3

REPORT INFORMATION
  Report Type: 
  Country: None (occurrence: None)
  Receive Date: 20060720
  Receipt Date: 20060504
  Transmission Date: 20061208
  Serious: Yes (Other)
  Sender: FDA-Public Use
  Company Number: 2005093771

PATIENT
  Age: 49 Year
  Sex: Female
  Weight: 83.8 kg

DRUGS (1)
  1. CELEBREX [Suspect]
     Indication: ILL-DEFINED DISORDER
     Dates: start: 19970101, end: 20030301

REACTIONS (1)
  - MYOCARDIAL INFARCTION [None]
